FAERS Safety Report 12401457 (Version 3)
Quarter: 2016Q2

REPORT INFORMATION
  Report Type: Spontaneous
  Country: ES (occurrence: ES)
  Receive Date: 20160525
  Receipt Date: 20160623
  Transmission Date: 20160815
  Serious: Yes (Other)
  Sender: FDA-Public Use
  Company Number: ALCN2016ES003362

PATIENT
  Age: 68 Year
  Sex: Male
  Weight: 92 kg

DRUGS (2)
  1. SYSTANE HYDRATION (ALC) [Suspect]
     Active Substance: HYALURONATE SODIUM\POLYETHYLENE GLYCOLS\PROPYLENE GLYCOL
     Indication: POSTOPERATIVE CARE
     Dosage: UNK
     Route: 047
  2. SYSTANE HYDRATION (ALC) [Suspect]
     Active Substance: HYALURONATE SODIUM\POLYETHYLENE GLYCOLS\PROPYLENE GLYCOL
     Indication: OCULAR DISCOMFORT

REACTIONS (3)
  - Ocular hyperaemia [Recovered/Resolved]
  - Uveitis [Recovering/Resolving]
  - Eye pruritus [Recovered/Resolved]
